FAERS Safety Report 4530372-9 (Version None)
Quarter: 2004Q4

REPORT INFORMATION
  Report Type: 
  Country: None (occurrence: None)
  Receive Date: 20041215
  Receipt Date: 20041207
  Transmission Date: 20050328
  Serious: Yes (Life-Threatening, Hospitalization, Disabling)
  Sender: FDA-Public Use
  Company Number: 220001N04FRA

PATIENT
  Age: 25 Year
  Sex: Female
  Weight: 78.6 kg

DRUGS (10)
  1. SAIZEN [Suspect]
     Indication: ENDOCRINE DISORDER
     Dosage: 0.2 MG, 1 IN 1 DAYS, SUBCUTANEOUS
     Route: 058
     Dates: start: 20040227
  2. LEVOTHYROXINE SODIUM [Concomitant]
  3. HYDROCORTISONE [Concomitant]
  4. DESMOPRESSIN ACETATE [Concomitant]
  5. PAROXETINE HYDROCHLORIDE [Concomitant]
  6. ORLISTAT [Concomitant]
  7. EUGYNON [Concomitant]
  8. DIAZEPAM [Concomitant]
  9. LOXAPINE SUCCINATE [Concomitant]
  10. SPASMINE [Concomitant]

REACTIONS (5)
  - CONDITION AGGRAVATED [None]
  - DEPRESSION [None]
  - MULTIPLE FRACTURES [None]
  - POLYTRAUMATISM [None]
  - SUICIDE ATTEMPT [None]
